FAERS Safety Report 4359299-2 (Version None)
Quarter: 2004Q2

REPORT INFORMATION
  Report Type: 
  Country: None (occurrence: None)
  Receive Date: 20040512
  Receipt Date: 20040426
  Transmission Date: 20050107
  Serious: Yes (Hospitalization)
  Sender: FDA-Public Use
  Company Number: 2004AP01558

PATIENT
  Age: 74 Year
  Sex: Female

DRUGS (5)
  1. ARIMIDEX [Suspect]
     Indication: BREAST CANCER RECURRENT
     Dosage: 1 MG DAILY PO
     Route: 048
     Dates: start: 20020621, end: 20020910
  2. ARIMIDEX [Suspect]
     Indication: BREAST CANCER RECURRENT
     Dosage: 1 MG DAILY PO
     Route: 048
     Dates: start: 20020912, end: 20021008
  3. TAXOL [Suspect]
     Indication: BREAST CANCER RECURRENT
     Dosage: 60 MG
     Dates: start: 20020712, end: 20020830
  4. BISPHONAL [Suspect]
     Indication: BREAST CANCER RECURRENT
     Dosage: 10 MG
     Dates: start: 20020705, end: 20021001
  5. RADIATION THERAPY [Concomitant]

REACTIONS (5)
  - ADVERSE DRUG REACTION [None]
  - BREAST CANCER RECURRENT [None]
  - LOSS OF CONSCIOUSNESS [None]
  - METASTASES TO BONE [None]
  - METASTASES TO SPINE [None]
